FAERS Safety Report 4885973-5 (Version None)
Quarter: 2006Q1

REPORT INFORMATION
  Report Type: 
  Country: None (occurrence: None)
  Receive Date: 20060117
  Receipt Date: 20060106
  Transmission Date: 20060701
  Serious: Yes (Other)
  Sender: FDA-Public Use
  Company Number: 2005RR-01333

PATIENT
  Age: 33 Year
  Sex: Female

DRUGS (3)
  1. NUROFEN PLUS (CODEINE) [Suspect]
     Dosage: ORAL
     Route: 048
  2. IBUPROFEN [Suspect]
     Dosage: ORAL
     Route: 048
  3. CODEINE PHOSPHATE TABLET 60MG BP (CODEINE PHOSPHATE) TABLET, 60MG [Suspect]
     Dosage: 60 MG, 5 TIMES PER DAY

REACTIONS (1)
  - DRUG DEPENDENCE [None]
